FAERS Safety Report 21851113 (Version 1)
Quarter: 2023Q1

REPORT INFORMATION
  Report Type: Spontaneous
  Country: NL (occurrence: NL)
  Receive Date: 20230112
  Receipt Date: 20230112
  Transmission Date: 20230417
  Serious: Yes (Life-Threatening, Hospitalization, Other)
  Sender: FDA-Public Use
  Company Number: None

PATIENT
  Sex: Male

DRUGS (3)
  1. MELPHALAN [Suspect]
     Active Substance: MELPHALAN
     Indication: Stem cell transplant
     Dosage: ONE-OFF, BRAND NAME NOT SPECIFIED
     Route: 065
     Dates: start: 20221120
  2. MELPHALAN [Suspect]
     Active Substance: MELPHALAN
     Indication: Plasma cell myeloma
  3. PREGABALINE SUN [Concomitant]
     Indication: Product used for unknown indication
     Dosage: 150 MILLIGRAM DAILY; 2DD1
     Route: 065

REACTIONS (4)
  - Systemic inflammatory response syndrome [Recovered/Resolved]
  - Polyneuropathy [Unknown]
  - Mucosal inflammation [Unknown]
  - Folate deficiency [Unknown]
